FAERS Safety Report 6726573-1 (Version None)
Quarter: 2010Q2

REPORT INFORMATION
  Report Type: 
  Country: None (occurrence: None)
  Receive Date: 20100514
  Receipt Date: 20100512
  Transmission Date: 20101027
  Serious: Yes (Other)
  Sender: FDA-Public Use
  Company Number: GB-CVT-100322

PATIENT

DRUGS (3)
  1. RANEXA [Suspect]
     Indication: ANGINA PECTORIS
     Dosage: 750 MG, UNK
     Route: 048
     Dates: start: 20100107, end: 20100222
  2. RANEXA [Suspect]
     Dosage: 375 MG, UNK
     Route: 048
     Dates: start: 20091207, end: 20100107
  3. VERAPAMIL                          /00014301/ [Concomitant]
     Indication: ANGINA PECTORIS
     Dates: start: 20090101

REACTIONS (2)
  - BACK PAIN [None]
  - RASH [None]
